FAERS Safety Report 10552369 (Version 1)
Quarter: 2014Q4

REPORT INFORMATION
  Report Type: Spontaneous
  Country: US (occurrence: None)
  Receive Date: 20141028
  Receipt Date: 20141028
  Transmission Date: 20150529
  Serious: No
  Sender: FDA-Public Use
  Company Number: None

PATIENT
  Age: 74 Year
  Sex: Male
  Weight: 95.9 kg

DRUGS (1)
  1. CLARITHROMYCIN. [Suspect]
     Active Substance: CLARITHROMYCIN
     Indication: UPPER RESPIRATORY TRACT INFECTION
     Dosage: MG PO
     Route: 048
     Dates: start: 20140704, end: 20140709

REACTIONS (4)
  - Fatigue [None]
  - Eyelid ptosis [None]
  - Dysphagia [None]
  - Speech disorder [None]

NARRATIVE: CASE EVENT DATE: 20140706
